FAERS Safety Report 7302913-X (Version None)
Quarter: 2011Q1

REPORT INFORMATION
  Report Type: 
  Country: None (occurrence: None)
  Receive Date: 20110218
  Receipt Date: 20110125
  Transmission Date: 20110831
  Serious: Yes (Other)
  Sender: FDA-Public Use
  Company Number: US-GILEAD-2011-0035147

PATIENT
  Sex: Male

DRUGS (2)
  1. CIPRO [Concomitant]
     Indication: URINARY TRACT INFECTION
     Dates: start: 20101224, end: 20101226
  2. RANEXA [Suspect]
     Indication: ANGINA PECTORIS
     Route: 048
     Dates: start: 20101001, end: 20101226

REACTIONS (2)
  - NEUTROPHIL COUNT ABNORMAL [None]
  - LEUKOPENIA [None]
